FAERS Safety Report 13895087 (Version 1)
Quarter: 2017Q3

REPORT INFORMATION
  Report Type: Spontaneous
  Country: US (occurrence: US)
  Receive Date: 20170817
  Receipt Date: 20170817
  Transmission Date: 20171127
  Serious: Yes (Other)
  Sender: FDA-Public Use
  Company Number: None

PATIENT
  Age: 76 Year
  Sex: Female
  Weight: 71.1 kg

DRUGS (1)
  1. ZEMAIRA [Suspect]
     Active Substance: .ALPHA.1-PROTEINASE INHIBITOR HUMAN
     Indication: ALPHA-1 ACID GLYCOPROTEIN ABNORMAL
     Dosage: ?          OTHER FREQUENCY:QWK;?
     Route: 042
     Dates: start: 20170817, end: 20170817

REACTIONS (1)
  - Asthenia [None]

NARRATIVE: CASE EVENT DATE: 20170817
